FAERS Safety Report 8336331-2 (Version None)
Quarter: 2012Q2

REPORT INFORMATION
  Report Type: 
  Country: None (occurrence: None)
  Receive Date: 20120501
  Receipt Date: 20120417
  Transmission Date: 20120825
  Serious: Yes (Hospitalization)
  Sender: FDA-Public Use
  Company Number: GB-DEXPHARM-20120299

PATIENT
  Age: 63 Year
  Sex: Male

DRUGS (5)
  1. LANSOPRAZOLE [Suspect]
     Dosage: 15 MG MILLIGRAM(S) SEP. DOSAGES / INTERVAL: 1 IN 1 DAY
  2. RANITIDINE [Suspect]
  3. AMLODIPINE [Concomitant]
  4. OMEPRAZOLE [Suspect]
     Indication: GASTROOESOPHAGEAL REFLUX DISEASE
     Dosage: 20 MG MILLIGRAM(S) SEP.DOSAGES / INTERVAL: 2 IN 1 DAY
  5. SIMVASTATIN [Concomitant]

REACTIONS (28)
  - MYOCLONUS [None]
  - BLOOD GLUCOSE INCREASED [None]
  - PRERENAL FAILURE [None]
  - VOMITING [None]
  - LETHARGY [None]
  - HEART RATE INCREASED [None]
  - BLOOD PH DECREASED [None]
  - URINE MAGNESIUM DECREASED [None]
  - BLOOD POTASSIUM DECREASED [None]
  - IMPAIRED WORK ABILITY [None]
  - DIARRHOEA [None]
  - HYPOMAGNESAEMIA [None]
  - BASE EXCESS DECREASED [None]
  - BARRETT'S OESOPHAGUS [None]
  - DRUG INEFFECTIVE [None]
  - CONVULSION [None]
  - COMA SCALE ABNORMAL [None]
  - BLOOD LACTIC ACID INCREASED [None]
  - BLOOD BICARBONATE DECREASED [None]
  - DEHYDRATION [None]
  - BLOOD CALCIUM DECREASED [None]
  - MELAENA [None]
  - GASTRITIS EROSIVE [None]
  - ABDOMINAL PAIN [None]
  - NEUTROPHIL COUNT INCREASED [None]
  - DUODENITIS [None]
  - PO2 INCREASED [None]
  - RADICULOPATHY [None]
